FAERS Safety Report 7348878-6 (Version None)
Quarter: 2011Q1

REPORT INFORMATION
  Report Type: 
  Country: None (occurrence: None)
  Receive Date: 20110314
  Receipt Date: 20110304
  Transmission Date: 20110831
  Serious: Yes (Death, Other)
  Sender: FDA-Public Use
  Company Number: ES-ELI_LILLY_AND_COMPANY-ES201103001758

PATIENT
  Sex: Male
  Weight: 51 kg

DRUGS (5)
  1. URBASON /00049601/ [Concomitant]
     Indication: CHRONIC OBSTRUCTIVE PULMONARY DISEASE
  2. INSULIN [Concomitant]
     Indication: DIABETES MELLITUS
  3. FORTEO [Suspect]
     Indication: OSTEOPOROSIS
     Dosage: 20 UG, DAILY (1/D)
     Route: 058
     Dates: start: 20110127, end: 20110216
  4. ADIRO [Concomitant]
  5. ANTIBIOTICS [Concomitant]

REACTIONS (2)
  - BRONCHOSPASM [None]
  - CHRONIC OBSTRUCTIVE PULMONARY DISEASE [None]
